FAERS Safety Report 18388186 (Version 3)
Quarter: 2024Q2

REPORT INFORMATION
  Report Type: Spontaneous
  Country: US (occurrence: US)
  Receive Date: 20201015
  Receipt Date: 20240429
  Transmission Date: 20240716
  Serious: Yes (Hospitalization)
  Sender: FDA-Public Use
  Company Number: US-SA-2020SA287361

PATIENT
  Sex: Female

DRUGS (1)
  1. DUPIXENT [Suspect]
     Active Substance: DUPILUMAB
     Indication: Asthma
     Dosage: 300 MG, QOW
     Route: 058
     Dates: start: 20190316

REACTIONS (5)
  - Photopsia [Unknown]
  - Eye pain [Unknown]
  - Intraocular pressure increased [Unknown]
  - Ocular hyperaemia [Unknown]
  - Dry eye [Not Recovered/Not Resolved]
